FAERS Safety Report 11334224 (Version 2)
Quarter: 2015Q3

REPORT INFORMATION
  Report Type: Spontaneous
  Country: IN (occurrence: IN)
  Receive Date: 20150803
  Receipt Date: 20150806
  Transmission Date: 20151125
  Serious: Yes (Other)
  Sender: FDA-Public Use
  Company Number: IN-BAXTER-2015BAX040109

PATIENT
  Age: 19 Year
  Sex: Male

DRUGS (5)
  1. OXYGEN. [Suspect]
     Active Substance: OXYGEN
     Dosage: FIO2 OF 0.4 TO 0.5
     Route: 055
  2. ISOFLURANE USP (AERRANE) 100ML, 250ML GLASS BOTTLES - INHALATION ANAES [Suspect]
     Active Substance: ISOFLURANE
     Indication: MAINTENANCE OF ANAESTHESIA
     Dosage: 0.9 END TIDAL CONCENTRATION
     Route: 055
  3. FENTANYL. [Suspect]
     Active Substance: FENTANYL
     Indication: INDUCTION OF ANAESTHESIA
     Route: 065
  4. ATRACURIUM [Suspect]
     Active Substance: ATRACURIUM
     Indication: INDUCTION OF ANAESTHESIA
     Route: 065
  5. OXYGEN. [Suspect]
     Active Substance: OXYGEN
     Indication: MECHANICAL VENTILATION
     Dosage: AT INITIAL FIO2 OF 0.4
     Route: 055

REACTIONS (1)
  - Hypoxia [Recovered/Resolved]
